FAERS Safety Report 23208236 (Version 1)
Quarter: 2023Q4

REPORT INFORMATION
  Report Type: Report from Study
  Country: AR (occurrence: AR)
  Receive Date: 20231121
  Receipt Date: 20231121
  Transmission Date: 20240110
  Serious: Yes (Other)
  Sender: FDA-Public Use
  Company Number: AR-ABBVIE-5501698

PATIENT
  Age: 60 Year
  Sex: Female

DRUGS (1)
  1. HUMIRA [Suspect]
     Active Substance: ADALIMUMAB
     Indication: Psoriatic arthropathy
     Dosage: STRENGTH 40 MG
     Route: 058
     Dates: start: 20070101

REACTIONS (4)
  - Uveitis [Not Recovered/Not Resolved]
  - Inflammation [Unknown]
  - Visual impairment [Unknown]
  - Pain [Unknown]

NARRATIVE: CASE EVENT DATE: 20231001
